FAERS Safety Report 9247621 (Version 1)
Quarter: 2013Q1

REPORT INFORMATION
  Report Type: Spontaneous
  Country: US (occurrence: None)
  Receive Date: 20130305
  Receipt Date: 20130305
  Transmission Date: 20140127
  Serious: Yes (Hospitalization)
  Sender: FDA-Public Use
  Company Number: 163-21880-12092281

PATIENT
  Age: 77 Year
  Sex: Male

DRUGS (6)
  1. REVLIMID (LENALIDOMIDE) (25 MILLIGRAM, CAPSULES) [Suspect]
     Indication: PLASMA CELL MYELOMA
     Dosage: 25 MG, 21 IN 21 D, PO
     Route: 048
     Dates: start: 201109
  2. HYDROCODONE / APAP (VICODIN) [Suspect]
  3. IBUPROFEN (IBUPROFEN) [Suspect]
  4. DEXAMETHASONE (DEXAMETHASONE) [Suspect]
  5. PRILOSEC [Suspect]
  6. ASA (ACETYLSALICYLIC ACID) [Suspect]

REACTIONS (1)
  - Infection [None]
